FAERS Safety Report 24730577 (Version 1)
Quarter: 2024Q4

REPORT INFORMATION
  Report Type: Spontaneous
  Country: AU (occurrence: AU)
  Receive Date: 20241213
  Receipt Date: 20241213
  Transmission Date: 20250115
  Serious: Yes (Other)
  Sender: CSL BEHRING
  Company Number: AU-BEH-2024177680

PATIENT
  Age: 31 Year
  Sex: Male
  Weight: 90 kg

DRUGS (5)
  1. BERINERT [Suspect]
     Active Substance: HUMAN C1-ESTERASE INHIBITOR
     Indication: Hereditary angioedema with C1 esterase inhibitor deficiency
     Dosage: 6000 IU, EVERY 3 DAYS
     Route: 058
     Dates: start: 202311, end: 202408
  2. BERINERT [Suspect]
     Active Substance: HUMAN C1-ESTERASE INHIBITOR
     Dosage: 6000 IU, EVERY 3 DAYS
     Route: 058
  3. LANADELUMAB [Concomitant]
     Active Substance: LANADELUMAB
     Dosage: UNK, QW
  4. ICATIBANT [Concomitant]
     Active Substance: ICATIBANT ACETATE
     Indication: Hereditary angioedema
  5. ICATIBANT [Concomitant]
     Active Substance: ICATIBANT ACETATE
     Indication: Hereditary angioedema

REACTIONS (4)
  - Drug ineffective [Unknown]
  - Hereditary angioedema [Recovering/Resolving]
  - Viral upper respiratory tract infection [Recovered/Resolved]
  - Stress at work [Unknown]

NARRATIVE: CASE EVENT DATE: 20240101
